FAERS Safety Report 19801114 (Version 1)
Quarter: 2021Q3

REPORT INFORMATION
  Report Type: Spontaneous
  Country: CN (occurrence: CN)
  Receive Date: 20210907
  Receipt Date: 20210907
  Transmission Date: 20211014
  Serious: Yes (Hospitalization, Other)
  Sender: FDA-Public Use
  Company Number: CN-ELI_LILLY_AND_COMPANY-CN202108011911

PATIENT
  Age: 51 Year
  Sex: Female
  Weight: 67.9 kg

DRUGS (1)
  1. TRULICITY [Suspect]
     Active Substance: DULAGLUTIDE
     Indication: DIABETES MELLITUS
     Dosage: 1.5 MG, WEEKLY (1/W)
     Route: 058
     Dates: start: 20210812, end: 20210812

REACTIONS (9)
  - Dizziness [Unknown]
  - Oedema [Recovering/Resolving]
  - Renal disorder [Unknown]
  - Vision blurred [Unknown]
  - Asthenia [Unknown]
  - Nausea [Unknown]
  - Blood osmolarity abnormal [Unknown]
  - Oedema peripheral [Recovering/Resolving]
  - Face oedema [Recovering/Resolving]

NARRATIVE: CASE EVENT DATE: 202108
